FAERS Safety Report 10476844 (Version 2)
Quarter: 2014Q3

REPORT INFORMATION
  Report Type: Spontaneous
  Country: US (occurrence: US)
  Receive Date: 20140926
  Receipt Date: 20140926
  Transmission Date: 20150326
  Serious: Yes (Other)
  Sender: FDA-Public Use
  Company Number: US-ROCHE-1445188

PATIENT
  Age: 52 Year
  Sex: Female

DRUGS (6)
  1. SOVALDI [Suspect]
     Active Substance: SOFOSBUVIR
     Indication: CHRONIC HEPATITIS C
     Route: 048
     Dates: start: 20140801
  2. AMBIEN [Concomitant]
     Active Substance: ZOLPIDEM TARTRATE
     Indication: SLEEP DISORDER
     Route: 065
  3. RIBASPHERE [Suspect]
     Active Substance: RIBAVIRIN
     Indication: CHRONIC HEPATITIS C
     Dosage: 3 TABLETS IN MORNING AND 2 TABLETS  IN EVENING
     Route: 065
     Dates: start: 20140801
  4. AMOXICILLIN. [Concomitant]
     Active Substance: AMOXICILLIN
  5. PEGASYS [Suspect]
     Active Substance: PEGINTERFERON ALFA-2A
     Indication: CHRONIC HEPATITIS C
     Route: 058
     Dates: start: 20140726
  6. AMLODIPINE AND BENAZEPRIL HYDROCHLORIDE [Concomitant]
     Active Substance: AMLODIPINE BESYLATE\BENAZEPRIL HYDROCHLORIDE
     Indication: HYPERTENSION
     Dosage: DOSE: 5-20 MG
     Route: 065

REACTIONS (9)
  - Intestinal cyst [Unknown]
  - Dizziness [Recovering/Resolving]
  - Injection site bruising [Unknown]
  - Oropharyngeal pain [Unknown]
  - Menstrual disorder [Unknown]
  - Back pain [Unknown]
  - Cough [Unknown]
  - Underdose [Unknown]
  - Alopecia [Not Recovered/Not Resolved]

NARRATIVE: CASE EVENT DATE: 20140802
